FAERS Safety Report 5849117-5 (Version None)
Quarter: 2008Q3

REPORT INFORMATION
  Report Type: 
  Country: None (occurrence: None)
  Receive Date: 20080815
  Receipt Date: 20080731
  Transmission Date: 20090109
  Serious: Yes (Disabling)
  Sender: FDA-Public Use
  Company Number: 8027010

PATIENT
  Age: 70 Year
  Sex: Male
  Weight: 70 kg

DRUGS (6)
  1. KEPPRA [Suspect]
     Indication: HYPOXIA
     Dosage: 1000 MG 3/D PO
     Route: 048
     Dates: start: 20070401, end: 20070901
  2. KEPPRA [Suspect]
     Indication: HYPOXIA
     Dosage: 750 MG /D
     Dates: start: 20070902, end: 20070101
  3. KEPPRA [Suspect]
     Indication: HYPOXIA
     Dosage: 250 MG /D
     Dates: start: 20070101, end: 20070101
  4. KEPPRA [Suspect]
     Indication: HYPOXIA
     Dosage: 125 MG /D
     Dates: start: 20071101, end: 20070101
  5. KEPPRA [Concomitant]
     Indication: HYPOXIA
     Dosage: 750 MG 2/D
  6. ASPIRIN [Suspect]
     Indication: STATUS EPILEPTICUS
     Dosage: 100 MG 1/D PO
     Route: 048

REACTIONS (14)
  - AGEUSIA [None]
  - ASTHENIA [None]
  - CEREBELLAR SYNDROME [None]
  - COORDINATION ABNORMAL [None]
  - EAR DISORDER [None]
  - FALL [None]
  - INFECTION [None]
  - INNER EAR DISORDER [None]
  - JOINT INSTABILITY [None]
  - MENTAL DISORDER [None]
  - MENTAL IMPAIRMENT [None]
  - MOTOR DYSFUNCTION [None]
  - NERVOUS SYSTEM DISORDER [None]
  - SLEEP DISORDER [None]
